FAERS Safety Report 22657972 (Version 1)
Quarter: 2023Q2

REPORT INFORMATION
  Report Type: Spontaneous
  Country: US (occurrence: US)
  Receive Date: 20230630
  Receipt Date: 20230630
  Transmission Date: 20230722
  Serious: No
  Sender: FDA-Public Use
  Company Number: US-CPL-003307

PATIENT
  Sex: Female

DRUGS (1)
  1. VERAPAMIL [Suspect]
     Active Substance: VERAPAMIL HYDROCHLORIDE
     Indication: Product used for unknown indication
     Dosage: EXTENDED-RELEASE TABLETS, ?STRENGTH: 240MG

REACTIONS (2)
  - Drug effect less than expected [Unknown]
  - Product substitution issue [Unknown]
